FAERS Safety Report 7631645-3 (Version None)
Quarter: 2011Q3

REPORT INFORMATION
  Report Type: 
  Country: None (occurrence: None)
  Receive Date: 20110725
  Receipt Date: 20110203
  Transmission Date: 20111222
  Serious: No
  Sender: FDA-Public Use
  Company Number: US-BRISTOL-MYERS SQUIBB COMPANY-15528516

PATIENT
  Age: 85 Year
  Sex: Female
  Weight: 48 kg

DRUGS (5)
  1. ZOCOR [Concomitant]
  2. TOPROL-XL [Concomitant]
  3. COUMADIN [Suspect]
     Indication: ATRIAL FIBRILLATION
     Dosage: 2.5MG EVERY DAY,5MG ON FRIDAYS,CURRENTLY ON 2.5MG/D
  4. TIAZAC [Concomitant]
  5. NAMENDA [Concomitant]

REACTIONS (1)
  - INTERNATIONAL NORMALISED RATIO FLUCTUATION [None]
